FAERS Safety Report 7357382-0 (Version None)
Quarter: 2011Q1

REPORT INFORMATION
  Report Type: 
  Country: None (occurrence: None)
  Receive Date: 20110308
  Receipt Date: 20110221
  Transmission Date: 20110831
  Serious: Yes (Other)
  Sender: FDA-Public Use
  Company Number: 2011P1004428

PATIENT
  Age: 76 Year
  Sex: Female
  Weight: 38.5557 kg

DRUGS (3)
  1. MAGNESIUM [Concomitant]
  2. SANTYL [Suspect]
     Indication: DECUBITUS ULCER
     Dosage: TID;TOP
     Route: 061
     Dates: start: 20110207
  3. VITAMIN D [Concomitant]

REACTIONS (2)
  - DRUG INEFFECTIVE [None]
  - WOUND COMPLICATION [None]
